FAERS Safety Report 19785305 (Version 2)
Quarter: 2021Q4

REPORT INFORMATION
  Report Type: Spontaneous
  Country: US (occurrence: US)
  Receive Date: 20210903
  Receipt Date: 20211015
  Transmission Date: 20220304
  Serious: No
  Sender: FDA-Public Use
  Company Number: 2021A667811

PATIENT
  Age: 12037 Day
  Sex: Male
  Weight: 172.4 kg

DRUGS (1)
  1. BYDUREON BCISE [Suspect]
     Active Substance: EXENATIDE
     Indication: Type 2 diabetes mellitus
     Route: 058
     Dates: start: 20210421

REACTIONS (5)
  - Injection site bruising [Recovering/Resolving]
  - Injection site haemorrhage [Recovered/Resolved]
  - Device use issue [Recovered/Resolved]
  - Incorrect dose administered by device [Unknown]
  - Device delivery system issue [Unknown]

NARRATIVE: CASE EVENT DATE: 20210802
